FAERS Safety Report 9157007 (Version 2)
Quarter: 2013Q1

REPORT INFORMATION
  Report Type: Spontaneous
  Country: US (occurrence: None)
  Receive Date: 20130206
  Receipt Date: 20130222
  Transmission Date: 20140127
  Serious: Yes (Hospitalization, Other)
  Sender: FDA-Public Use
  Company Number: DKLU1088616

PATIENT
  Age: 20 Year
  Sex: Male

DRUGS (2)
  1. SABRIL (TABLET) (SABRIL) (VIGABATRIN) (500 MG, TABLET) [Suspect]
     Indication: COMPLEX PARTIAL SEIZURES
     Dosage: 3 IN 1 D
     Dates: start: 20130111
  2. DEPAKOTE (VALPROATE SEMISODIUM) [Concomitant]
     Route: 048
     Dates: start: 20130111

REACTIONS (1)
  - Pneumonia [None]
